FAERS Safety Report 13188005 (Version 1)
Quarter: 2017Q1

REPORT INFORMATION
  Report Type: Spontaneous
  Country: US (occurrence: US)
  Receive Date: 20170206
  Receipt Date: 20170206
  Transmission Date: 20170428
  Serious: Yes (Hospitalization)
  Sender: FDA-Public Use
  Company Number: US-AUROBINDO-AUR-APL-2017-29165

PATIENT
  Age: 34 Year
  Sex: Male

DRUGS (1)
  1. CARISOPRODOL TABLETS [Suspect]
     Active Substance: CARISOPRODOL
     Indication: PRODUCT USED FOR UNKNOWN INDICATION
     Route: 065

REACTIONS (12)
  - Cyanosis [Unknown]
  - Drug abuse [Unknown]
  - Unresponsive to stimuli [Unknown]
  - Agitation [Unknown]
  - Hypoxia [Unknown]
  - Seizure [Unknown]
  - Respiratory distress [Unknown]
  - Drug withdrawal syndrome [Unknown]
  - Sinus tachycardia [Unknown]
  - Drug dependence [Unknown]
  - Vomiting [Unknown]
  - Overdose [Unknown]
